FAERS Safety Report 15211740 (Version 1)
Quarter: 2018Q3

REPORT INFORMATION
  Report Type: Spontaneous
  Country: FR (occurrence: FR)
  Receive Date: 20180729
  Receipt Date: 20180729
  Transmission Date: 20181010
  Serious: Yes (Other)
  Sender: FDA-Public Use
  Company Number: PHHY2018FR056896

PATIENT
  Age: 45 Year
  Sex: Male
  Weight: 87 kg

DRUGS (3)
  1. AMOXICILLIN. [Suspect]
     Active Substance: AMOXICILLIN
     Indication: STEM CELL TRANSPLANT
     Dosage: UNK
     Route: 048
  2. BACTRIM [Suspect]
     Active Substance: SULFAMETHOXAZOLE\TRIMETHOPRIM
     Indication: STEM CELL TRANSPLANT
     Dosage: UNK
     Route: 048
  3. URSOLVAN [Concomitant]
     Active Substance: URSODIOL
     Indication: STEM CELL TRANSPLANT
     Dosage: UNK
     Route: 048

REACTIONS (2)
  - Tremor [Recovering/Resolving]
  - Sleep disorder [Recovering/Resolving]

NARRATIVE: CASE EVENT DATE: 201711
